FAERS Safety Report 7064802-8 (Version None)
Quarter: 2010Q4

REPORT INFORMATION
  Report Type: 
  Country: None (occurrence: None)
  Receive Date: 20101027
  Receipt Date: 20101014
  Transmission Date: 20110411
  Serious: Yes (Hospitalization)
  Sender: FDA-Public Use
  Company Number: US-BAUSCH-2010BL004386

PATIENT
  Age: 9 Year
  Sex: Male

DRUGS (2)
  1. POLYMYXIN B SULFATES AND TRIMETHOPRIM SULFATE [Suspect]
     Indication: CONJUNCTIVITIS INFECTIVE
     Route: 047
     Dates: start: 20100803, end: 20100803
  2. ALBUTEROL [Concomitant]
     Indication: BRONCHITIS
     Route: 049

REACTIONS (1)
  - TOXIC EPIDERMAL NECROLYSIS [None]
